FAERS Safety Report 9479409 (Version 1)
Quarter: 2013Q3

REPORT INFORMATION
  Report Type: Spontaneous
  Country: GB (occurrence: GB)
  Receive Date: 20130827
  Receipt Date: 20130827
  Transmission Date: 20140515
  Serious: Yes (Other)
  Sender: FDA-Public Use
  Company Number: GB-ACTAVIS-2013-15396

PATIENT
  Age: 29 Year
  Sex: Female

DRUGS (2)
  1. ACYCLOVIR (UNKNOWN) [Suspect]
     Indication: HERPES VIRUS INFECTION
     Dosage: 800 MG, UNKNOWN
     Route: 048
     Dates: start: 20130802, end: 20130804
  2. TRAMADOL [Concomitant]
     Indication: PRODUCT USED FOR UNKNOWN INDICATION
     Dosage: UNK, UNKNOWN
     Route: 065

REACTIONS (5)
  - Tremor [Unknown]
  - Confusional state [Unknown]
  - Feeling abnormal [Unknown]
  - Headache [Unknown]
  - Amnesia [Unknown]
